FAERS Safety Report 7489080-7 (Version None)
Quarter: 2011Q2

REPORT INFORMATION
  Report Type: 
  Country: None (occurrence: None)
  Receive Date: 20110518
  Receipt Date: 20110504
  Transmission Date: 20111010
  Serious: Yes (Other)
  Sender: FDA-Public Use
  Company Number: US-JNJFOC-20110502804

PATIENT
  Sex: Male
  Weight: 35.9 kg

DRUGS (4)
  1. OMEPRAZOLE [Concomitant]
  2. LEVSIN [Concomitant]
  3. PREDNISONE [Concomitant]
  4. REMICADE [Suspect]
     Indication: INFLAMMATORY BOWEL DISEASE
     Route: 042
     Dates: start: 20110427

REACTIONS (3)
  - HEMICEPHALALGIA [None]
  - VISION BLURRED [None]
  - MYALGIA [None]
